FAERS Safety Report 7450114-7 (Version None)
Quarter: 2011Q2

REPORT INFORMATION
  Report Type: 
  Country: None (occurrence: None)
  Receive Date: 20110502
  Receipt Date: 20110411
  Transmission Date: 20111010
  Serious: No
  Sender: FDA-Public Use
  Company Number: US-B.I. PHARMACEUTICALS,INC./RIDGEFIELD-2011-BP-10501BP

PATIENT
  Sex: Female

DRUGS (16)
  1. LEVOXYL [Concomitant]
     Dosage: 0.025 MG
     Route: 048
     Dates: start: 20101001
  2. SPIRIVA [Suspect]
     Indication: CHRONIC OBSTRUCTIVE PULMONARY DISEASE
     Dosage: 18 MCG
     Route: 055
     Dates: start: 20110128, end: 20110215
  3. PRILOSEC [Concomitant]
     Indication: DYSPEPSIA
  4. DIOVAN [Concomitant]
     Indication: HYPERTENSION
     Dosage: 80 MG
     Route: 048
  5. XANAX [Concomitant]
     Indication: SLEEP DISORDER
  6. PRILOSEC [Concomitant]
     Indication: GASTROOESOPHAGEAL REFLUX DISEASE
     Dosage: 20 MG
     Route: 048
     Dates: start: 20060101
  7. EFFEXOR [Concomitant]
     Indication: DEPRESSION
  8. PRAVASTATIN [Concomitant]
     Indication: BLOOD CHOLESTEROL INCREASED
     Dosage: 40 MG
     Route: 048
     Dates: start: 20101201
  9. XANAX [Concomitant]
     Indication: ANXIETY
     Dosage: 0.5 MG
     Route: 048
     Dates: start: 20070101
  10. COENZYME Q10 [Concomitant]
     Indication: PROPHYLAXIS
     Dosage: 100 MG
     Route: 048
     Dates: start: 20090101
  11. LEVOXYL [Concomitant]
     Indication: HYPOTHYROIDISM
     Dosage: 0.05 MG
     Route: 048
     Dates: start: 20100901
  12. ASPIRIN [Concomitant]
     Indication: PROPHYLAXIS
     Dosage: 81 MG
     Route: 048
     Dates: start: 20010101
  13. VITAMIN D [Concomitant]
     Indication: PROPHYLAXIS
     Dosage: 2000 U
     Route: 048
  14. ACIDOPHILUS [Concomitant]
     Indication: PROPHYLAXIS
     Route: 048
     Dates: start: 20110201
  15. EFFEXOR [Concomitant]
     Indication: HOT FLUSH
     Dosage: 35 MG
     Route: 048
     Dates: start: 20070101
  16. L-LYSINE [Concomitant]
     Indication: PROPHYLAXIS
     Dosage: 500 MG
     Route: 048

REACTIONS (2)
  - MOUTH ULCERATION [None]
  - THROAT LESION [None]
